FAERS Safety Report 10151407 (Version 1)
Quarter: 2014Q2

REPORT INFORMATION
  Report Type: Spontaneous
  Country: US (occurrence: US)
  Receive Date: 20140504
  Receipt Date: 20140504
  Transmission Date: 20141212
  Serious: No
  Sender: FDA-Public Use
  Company Number: US-009507513-1404USA004497

PATIENT
  Age: 19 Year
  Sex: Female
  Weight: 54.42 kg

DRUGS (3)
  1. NUVARING [Suspect]
     Indication: CONTRACEPTION
     Dosage: IN FOR UP TO 4 WEEKS
     Route: 067
     Dates: start: 201403, end: 20140401
  2. NUVARING [Suspect]
     Dosage: 3 WEEKS IN, 1 WEEK RING FREE BREAK
     Route: 067
     Dates: start: 20140222, end: 201403
  3. NUVARING [Suspect]
     Dosage: UNK
     Route: 067
     Dates: start: 20140401

REACTIONS (2)
  - Incorrect drug administration duration [Unknown]
  - Metrorrhagia [Not Recovered/Not Resolved]
